FAERS Safety Report 18981165 (Version 1)
Quarter: 2021Q1

REPORT INFORMATION
  Report Type: Spontaneous
  Country: DE (occurrence: DE)
  Receive Date: 20210308
  Receipt Date: 20210308
  Transmission Date: 20210420
  Serious: Yes (Death, Life-Threatening, Hospitalization, Other)
  Sender: FDA-Public Use
  Company Number: DE-SA-2021SA076173

PATIENT
  Age: 83 Year
  Sex: Female

DRUGS (1)
  1. CLEXANE [Suspect]
     Active Substance: ENOXAPARIN SODIUM
     Dosage: 0.4 ML, 1X

REACTIONS (4)
  - Gaze palsy [Unknown]
  - Depressed level of consciousness [Unknown]
  - Hemiplegia [Unknown]
  - Acute respiratory failure [Unknown]
